FAERS Safety Report 7232322-3 (Version None)
Quarter: 2011Q1

REPORT INFORMATION
  Report Type: 
  Country: None (occurrence: None)
  Receive Date: 20110106
  Receipt Date: 20101228
  Transmission Date: 20110831
  Serious: Yes (Hospitalization)
  Sender: FDA-Public Use
  Company Number: 2010GW000977

PATIENT
  Age: 70 Year
  Sex: Female

DRUGS (7)
  1. FLECAINIDE ACETATE [Suspect]
     Indication: ATRIAL FIBRILLATION
     Dosage: 100 MG;QD;PO; 300 MG;QD;PO
     Route: 048
  2. ETOMIDATE [Concomitant]
  3. MIDAZOLAM [Concomitant]
  4. SEVFLURANE [Concomitant]
  5. AMIODARONE [Concomitant]
  6. CISATRACURIUM [Concomitant]
  7. FENTANYL [Concomitant]

REACTIONS (16)
  - CHOLECYSTITIS ACUTE [None]
  - HAEMOGLOBIN DECREASED [None]
  - HYPERGLYCAEMIA [None]
  - ATRIOVENTRICULAR BLOCK [None]
  - LEUKOCYTOSIS [None]
  - ATRIAL FIBRILLATION [None]
  - DEPRESSED LEVEL OF CONSCIOUSNESS [None]
  - HYPOTENSION [None]
  - RENAL FAILURE [None]
  - CHOLECYSTECTOMY [None]
  - ELECTROCARDIOGRAM QRS COMPLEX PROLONGED [None]
  - PULMONARY OEDEMA [None]
  - SEPSIS [None]
  - TOXICITY TO VARIOUS AGENTS [None]
  - HEPATIC FAILURE [None]
  - ELECTROCARDIOGRAM QT PROLONGED [None]
